FAERS Safety Report 14830305 (Version 1)
Quarter: 2018Q2

REPORT INFORMATION
  Report Type: Spontaneous
  Country: US (occurrence: US)
  Receive Date: 20180430
  Receipt Date: 20180430
  Transmission Date: 20180711
  Serious: No
  Sender: FDA-Public Use
  Company Number: US-SA-2018SA023298

PATIENT
  Age: 59 Year
  Sex: Female
  Weight: 72.1 kg

DRUGS (2)
  1. ALIROCUMAB PREFILLED PEN [Suspect]
     Active Substance: ALIROCUMAB
     Indication: BLOOD CHOLESTEROL INCREASED
     Dates: start: 2017
  2. PRALUENT [Suspect]
     Active Substance: ALIROCUMAB
     Indication: BLOOD CHOLESTEROL INCREASED
     Route: 058
     Dates: start: 2017

REACTIONS (5)
  - Anaemia [Unknown]
  - Feeling abnormal [Unknown]
  - Fatigue [Unknown]
  - Decreased appetite [Unknown]
  - Blood count abnormal [Unknown]
